FAERS Safety Report 9138153 (Version 2)
Quarter: 2013Q1

REPORT INFORMATION
  Report Type: Spontaneous
  Country: JP (occurrence: JP)
  Receive Date: 20130304
  Receipt Date: 20130315
  Transmission Date: 20140127
  Serious: Yes (Death, Other)
  Sender: FDA-Public Use
  Company Number: JP-PFIZER INC-2013074784

PATIENT
  Age: 72 Year
  Sex: Female

DRUGS (3)
  1. CELECOX [Suspect]
     Indication: BACK PAIN
     Dosage: 50 MG, 2X/DAY
     Route: 048
     Dates: end: 20130221
  2. PROPANOLOL HCL [Suspect]
     Indication: TACHYCARDIA
     Dosage: 10 MG, 1X/DAY
     Route: 048
     Dates: start: 20130104, end: 20130221
  3. FOSAMAX [Suspect]
     Indication: OSTEOPOROSIS
     Dosage: 35 MG, WEEKLY
     Route: 048
     Dates: end: 20130221

REACTIONS (3)
  - Aortic dissection [Fatal]
  - Cardiac tamponade [Fatal]
  - Intentional drug misuse [Unknown]
